FAERS Safety Report 14961113 (Version 2)
Quarter: 2018Q3

REPORT INFORMATION
  Report Type: Spontaneous
  Country: US (occurrence: US)
  Receive Date: 20180601
  Receipt Date: 20180731
  Transmission Date: 20181010
  Serious: Yes (Hospitalization)
  Sender: FDA-Public Use
  Company Number: US-BEH-2018091190

PATIENT
  Age: 2 Year
  Sex: Male

DRUGS (1)
  1. HUMATE?P [Suspect]
     Active Substance: HUMAN COAGULATION FACTOR VIII/VON WILLEBRAND FACTOR COMPLEX
     Indication: VON WILLEBRAND^S DISEASE
     Dosage: Q MONDAY AND THURSDAY PROPHY
     Route: 042
     Dates: start: 20160503

REACTIONS (1)
  - Haematemesis [Recovered/Resolved]
